FAERS Safety Report 8305875-1 (Version None)
Quarter: 2012Q1

REPORT INFORMATION
  Report Type: 
  Country: None (occurrence: None)
  Receive Date: 20120326
  Receipt Date: 20111112
  Transmission Date: 20120608
  Serious: Yes (Hospitalization)
  Sender: FDA-Public Use
  Company Number: PHEH2011US009269

PATIENT
  Sex: Male

DRUGS (2)
  1. LANTUS [Suspect]
     Indication: DIABETES MELLITUS
     Dosage: UNK UKN, UNK
  2. TASIGNA [Suspect]
     Dosage: UNK UKN, UNK

REACTIONS (2)
  - NAUSEA [None]
  - PAIN [None]
